FAERS Safety Report 6992673-4 (Version None)
Quarter: 2010Q3

REPORT INFORMATION
  Report Type: 
  Country: None (occurrence: None)
  Receive Date: 20100917
  Receipt Date: 20100913
  Transmission Date: 20110219
  Serious: Yes (Hospitalization)
  Sender: FDA-Public Use
  Company Number: ES-SANOFI-AVENTIS-2010SA055294

PATIENT
  Age: 74 Year
  Sex: Male

DRUGS (19)
  1. APIDRA SOLOSTAR [Interacting]
     Route: 058
     Dates: start: 20100304, end: 20100614
  2. SOLOSTAR [Suspect]
     Dates: start: 20100304, end: 20100614
  3. REPAGLINIDE [Interacting]
     Route: 048
     Dates: start: 20100601, end: 20100621
  4. REPAGLINIDE [Interacting]
     Route: 048
     Dates: start: 20100304, end: 20100601
  5. LANTUS OPTISET [Concomitant]
     Route: 058
  6. OPTISET [Concomitant]
  7. ARANESP [Concomitant]
     Route: 058
  8. ROCALTROL [Concomitant]
     Route: 048
  9. HIDROXIL B12 B6 B1 [Concomitant]
     Route: 048
  10. MASTICAL [Concomitant]
     Route: 048
  11. OMEPRAZOLE [Concomitant]
     Route: 048
  12. LORAZEPAM [Concomitant]
     Route: 048
  13. SINTROM [Concomitant]
     Indication: ATRIAL FIBRILLATION
     Route: 048
  14. SEGURIL [Concomitant]
     Route: 048
  15. ALDACTONE [Concomitant]
     Route: 048
  16. MIRTAZAPINE [Concomitant]
     Route: 048
  17. RISPERDAL [Concomitant]
     Route: 048
  18. LORMETAZEPAM [Concomitant]
     Route: 048
  19. ACETYLCYSTEINE [Concomitant]
     Route: 048

REACTIONS (2)
  - DRUG INTERACTION [None]
  - HYPOGLYCAEMIC COMA [None]
